FAERS Safety Report 10583737 (Version 2)
Quarter: 2014Q4

REPORT INFORMATION
  Report Type: Spontaneous
  Country: US (occurrence: None)
  Receive Date: 20141112
  Receipt Date: 20141204
  Transmission Date: 20150529
  Serious: Yes (Other)
  Sender: FDA-Public Use
  Company Number: 2014-US-014472

PATIENT
  Age: 60 Year
  Sex: Male

DRUGS (2)
  1. XYREM [Suspect]
     Active Substance: SODIUM OXYBATE
     Indication: NARCOLEPSY
     Route: 048
     Dates: start: 201410, end: 201410
  2. XYREM [Suspect]
     Active Substance: SODIUM OXYBATE
     Indication: SOMNOLENCE
     Route: 048
     Dates: start: 201410, end: 201410

REACTIONS (7)
  - Confusional state [None]
  - Seizure [None]
  - Fall [None]
  - Somnambulism [None]
  - Dyskinesia [None]
  - Muscle contracture [None]
  - Diarrhoea [None]

NARRATIVE: CASE EVENT DATE: 2014
